FAERS Safety Report 4445277-1 (Version None)
Quarter: 2004Q3

REPORT INFORMATION
  Report Type: 
  Country: None (occurrence: None)
  Receive Date: 20040823
  Receipt Date: 20040603
  Transmission Date: 20050211
  Serious: Yes (Hospitalization)
  Sender: FDA-Public Use
  Company Number: CIP04000885

PATIENT
  Age: 42 Year
  Sex: Male
  Weight: 74.8 kg

DRUGS (3)
  1. ASACOL [Suspect]
     Indication: COLITIS ULCERATIVE
     Dosage: 1200 MG THREE TIME DAILY, ORAL
     Route: 048
     Dates: start: 20040414, end: 20040424
  2. DRUGS FOR FUNCTIONAL GASTROINTEST. DISORDERS [Concomitant]
  3. ZYRTEC [Concomitant]

REACTIONS (14)
  - ARTHRALGIA [None]
  - CHEST PAIN [None]
  - DIFFERENTIAL WHITE BLOOD CELL COUNT ABNORMAL [None]
  - EOSINOPHILIA [None]
  - HAEMATOCRIT DECREASED [None]
  - HAEMOGLOBIN DECREASED [None]
  - HEADACHE [None]
  - MUSCULOSKELETAL STIFFNESS [None]
  - NAUSEA [None]
  - NECK PAIN [None]
  - PYREXIA [None]
  - RECTAL HAEMORRHAGE [None]
  - VOMITING [None]
  - WHITE BLOOD CELL COUNT INCREASED [None]
